FAERS Safety Report 17253489 (Version 3)
Quarter: 2020Q1

REPORT INFORMATION
  Report Type: Report from Study
  Country: US (occurrence: US)
  Receive Date: 20200109
  Receipt Date: 20200319
  Transmission Date: 20200409
  Serious: Yes (Hospitalization)
  Sender: FDA-Public Use
  Company Number: US-ACTELION-A-NJ2013-88642

PATIENT
  Age: 46 Year
  Sex: Female
  Weight: 55.78 kg

DRUGS (8)
  1. VELETRI [Suspect]
     Active Substance: EPOPROSTENOL
     Dosage: 138 NG/KG, PER MIN
     Route: 042
     Dates: start: 20160405
  2. FLOLAN [Concomitant]
     Active Substance: EPOPROSTENOL SODIUM
  3. VELETRI [Suspect]
     Active Substance: EPOPROSTENOL
     Dosage: 120 NG/KG, PER MIN
     Route: 042
  4. VELETRI [Suspect]
     Active Substance: EPOPROSTENOL
     Dosage: 122 NG/KG, PER MIN
     Route: 042
  5. COUMADIN [Concomitant]
     Active Substance: WARFARIN SODIUM
  6. VELETRI [Suspect]
     Active Substance: EPOPROSTENOL
     Indication: PULMONARY ARTERIAL HYPERTENSION
     Dosage: 122 NG/KG, PER MIN
     Route: 042
  7. VELETRI [Suspect]
     Active Substance: EPOPROSTENOL
     Dosage: 148 NG/KG, PER MIN
     Route: 042
     Dates: start: 20160405
  8. VELETRI [Suspect]
     Active Substance: EPOPROSTENOL
     Dosage: 200 NG/KG, PER MIN
     Route: 042
     Dates: start: 20130826

REACTIONS (40)
  - Nasopharyngitis [Unknown]
  - Infusion site erythema [Unknown]
  - Tenderness [Unknown]
  - Device breakage [Unknown]
  - Pain in jaw [Unknown]
  - Pneumonia [Unknown]
  - Blood test abnormal [Unknown]
  - Infusion site infection [Unknown]
  - Clostridium difficile infection [Unknown]
  - Heart rate irregular [Unknown]
  - Diarrhoea [Unknown]
  - Flushing [Unknown]
  - Palpitations [Unknown]
  - Pyrexia [Unknown]
  - Hypotension [Unknown]
  - Tooth fracture [Unknown]
  - Fall [Unknown]
  - Gastrointestinal disorder [Unknown]
  - Biliary colic [Unknown]
  - Dyspnoea [Unknown]
  - Dizziness [Unknown]
  - Oedema peripheral [Unknown]
  - Nausea [Unknown]
  - Endodontic procedure [Unknown]
  - Back disorder [Unknown]
  - Oxygen saturation decreased [Unknown]
  - Alopecia [Unknown]
  - Cardiac output increased [Unknown]
  - Pain in extremity [Unknown]
  - Oedema [Unknown]
  - Rash [Unknown]
  - Tooth infection [Unknown]
  - Medical device change [Unknown]
  - Chest pain [Not Recovered/Not Resolved]
  - Walking distance test abnormal [Unknown]
  - Musculoskeletal pain [Unknown]
  - Fatigue [Not Recovered/Not Resolved]
  - Dyspnoea exertional [Unknown]
  - Erythema [Unknown]
  - Pulmonary arterial pressure increased [Unknown]

NARRATIVE: CASE EVENT DATE: 201606
